FAERS Safety Report 23778453 (Version 1)
Quarter: 2024Q2

REPORT INFORMATION
  Report Type: Spontaneous
  Country: US (occurrence: None)
  Receive Date: 20240423
  Receipt Date: 20240423
  Transmission Date: 20240715
  Serious: Yes (Other)
  Sender: FDA-Public Use
  Company Number: None

PATIENT
  Age: 37 Year
  Sex: Female
  Weight: 81.65 kg

DRUGS (1)
  1. LURASIDONE [Suspect]
     Active Substance: LURASIDONE
     Indication: Bipolar disorder

REACTIONS (4)
  - Exposure during pregnancy [None]
  - Maternal drugs affecting foetus [None]
  - Abortion spontaneous [None]
  - Cytogenetic abnormality [None]

NARRATIVE: CASE EVENT DATE: 20231213
